FAERS Safety Report 15924831 (Version 2)
Quarter: 2019Q1

REPORT INFORMATION
  Report Type: Spontaneous
  Country: US (occurrence: US)
  Receive Date: 20190205
  Receipt Date: 20190219
  Transmission Date: 20190417
  Serious: No
  Sender: FDA-Public Use
  Company Number: US-ALLERGAN-1837738US

PATIENT
  Age: 49 Year
  Sex: Female

DRUGS (2)
  1. BOTOX COSMETIC [Suspect]
     Active Substance: ONABOTULINUMTOXINA
     Indication: SKIN WRINKLING
     Dosage: 24 UNITS, SINGLE
     Route: 030
     Dates: start: 20180621, end: 20180621
  2. JUVEDERM ULTRA [Concomitant]
     Active Substance: HYALURONIC ACID
     Dosage: 1 ML, SINGLE
     Route: 065
     Dates: start: 20180621, end: 20180621

REACTIONS (12)
  - Body dysmorphic disorder [Not Recovered/Not Resolved]
  - Somatic symptom disorder [Not Recovered/Not Resolved]
  - Headache [Unknown]
  - Vomiting [Unknown]
  - Photopsia [Recovered/Resolved]
  - Eye pain [Unknown]
  - Nausea [Unknown]
  - Dry eye [Unknown]
  - Fatigue [Unknown]
  - Teething [Unknown]
  - Rash [Unknown]
  - Visual impairment [Recovered/Resolved]

NARRATIVE: CASE EVENT DATE: 201807
